FAERS Safety Report 15867759 (Version 2)
Quarter: 2019Q1

REPORT INFORMATION
  Report Type: Report from Study
  Country: CA (occurrence: CA)
  Receive Date: 20190125
  Receipt Date: 20190213
  Transmission Date: 20190417
  Serious: Yes (Other)
  Sender: FDA-Public Use
  Company Number: CA-BRISTOL-MYERS SQUIBB COMPANY-BMS-2018-021439

PATIENT
  Age: 85 Year
  Sex: Male

DRUGS (1)
  1. ABATACEPT [Suspect]
     Active Substance: ABATACEPT
     Indication: RHEUMATOID ARTHRITIS
     Dosage: 1000 MG, Q4WK
     Route: 042
     Dates: start: 20170713

REACTIONS (7)
  - Haemoglobin decreased [Unknown]
  - Lung disorder [Unknown]
  - Hepatic cancer metastatic [Unknown]
  - Heart rate irregular [Unknown]
  - Irregular breathing [Unknown]
  - Pain in extremity [Not Recovered/Not Resolved]
  - Gastrointestinal disorder [Unknown]

NARRATIVE: CASE EVENT DATE: 20180612
